FAERS Safety Report 16661242 (Version 1)
Quarter: 2019Q3

REPORT INFORMATION
  Report Type: Spontaneous
  Country: US (occurrence: US)
  Receive Date: 20190801
  Receipt Date: 20190801
  Transmission Date: 20191004
  Serious: Yes (Hospitalization)
  Sender: FDA-Public Use
  Company Number: None

PATIENT
  Age: 30 Year
  Weight: 40 kg

DRUGS (1)
  1. INFLECTRA [Suspect]
     Active Substance: INFLIXIMAB-DYYB
     Indication: CROHN^S DISEASE
     Route: 042
     Dates: start: 20190730, end: 20190730

REACTIONS (6)
  - Vomiting [None]
  - Chills [None]
  - Nausea [None]
  - Tachycardia [None]
  - Erythema [None]
  - Hyperhidrosis [None]

NARRATIVE: CASE EVENT DATE: 20190730
